FAERS Safety Report 7184470-4 (Version None)
Quarter: 2010Q4

REPORT INFORMATION
  Report Type: 
  Country: None (occurrence: None)
  Receive Date: 20101222
  Receipt Date: 20101213
  Transmission Date: 20110411
  Serious: Yes (Hospitalization, Other)
  Sender: FDA-Public Use
  Company Number: JP-ASTRAZENECA-2010SE39707

PATIENT
  Sex: Male
  Weight: 100 kg

DRUGS (20)
  1. COKENZEN [Suspect]
     Indication: HYPERTENSION
     Dosage: 16/12.5 DAILY
     Route: 048
     Dates: start: 20090730, end: 20100127
  2. PLAVIX [Suspect]
     Indication: CEREBROVASCULAR ACCIDENT
     Route: 048
     Dates: start: 20050117, end: 20100901
  3. VERAPAMIL [Suspect]
     Indication: HYPERTENSION
     Route: 048
     Dates: start: 20031209
  4. VERAPAMIL [Suspect]
     Route: 048
  5. INEGY [Suspect]
     Indication: ACUTE CORONARY SYNDROME
     Route: 048
     Dates: start: 20070423
  6. GABAPENTINE [Concomitant]
     Indication: PRODUCT USED FOR UNKNOWN INDICATION
     Route: 048
  7. FLUDEX [Concomitant]
     Indication: PRODUCT USED FOR UNKNOWN INDICATION
     Route: 048
  8. VASTAREL [Concomitant]
     Indication: PRODUCT USED FOR UNKNOWN INDICATION
     Route: 048
  9. STRESAM [Concomitant]
     Indication: PRODUCT USED FOR UNKNOWN INDICATION
     Route: 048
  10. HYPERIUM [Concomitant]
     Indication: PRODUCT USED FOR UNKNOWN INDICATION
     Route: 048
  11. PARIET [Concomitant]
     Indication: PRODUCT USED FOR UNKNOWN INDICATION
     Route: 048
  12. AERIUS [Concomitant]
     Indication: PRODUCT USED FOR UNKNOWN INDICATION
     Route: 048
  13. SINGULAIR [Concomitant]
     Indication: ASTHMA
     Route: 048
  14. KARDEGIC [Concomitant]
     Indication: CEREBROVASCULAR ACCIDENT
     Route: 048
  15. PROPOFAN [Concomitant]
     Indication: PRODUCT USED FOR UNKNOWN INDICATION
     Route: 048
  16. SYMBICORT [Concomitant]
     Indication: ASTHMA
     Route: 055
  17. NEXEN [Concomitant]
     Indication: ARTHRALGIA
     Route: 048
     Dates: start: 20100816
  18. FLEXEA [Concomitant]
     Indication: ARTHRALGIA
     Route: 048
     Dates: start: 20100816
  19. APROVEL [Concomitant]
     Indication: HYPERTENSION
     Route: 048
     Dates: start: 20100128, end: 20100601
  20. ISOPTIN [Concomitant]
     Route: 048
     Dates: start: 20100601

REACTIONS (1)
  - LICHEN PLANUS [None]
